FAERS Safety Report 9145739 (Version 1)
Quarter: 2013Q1

REPORT INFORMATION
  Report Type: Spontaneous
  Country: DE (occurrence: DE)
  Receive Date: 20130307
  Receipt Date: 20130307
  Transmission Date: 20140127
  Serious: Yes (Hospitalization)
  Sender: FDA-Public Use
  Company Number: PHHY2013DE021650

PATIENT
  Sex: Female
  Weight: 58.9 kg

DRUGS (1)
  1. ESTRADOT [Suspect]
     Dosage: 50 UG, Q72H
     Route: 062

REACTIONS (1)
  - Benign mesenteric neoplasm [Not Recovered/Not Resolved]
